FAERS Safety Report 10342649 (Version 1)
Quarter: 2014Q3

REPORT INFORMATION
  Report Type: Spontaneous
  Country: US (occurrence: None)
  Receive Date: 20140724
  Receipt Date: 20140724
  Transmission Date: 20150326
  Serious: Yes (Hospitalization)
  Sender: FDA-Public Use
  Company Number: None

PATIENT

DRUGS (1)
  1. HYDRALAZINE [Suspect]
     Active Substance: HYDRALAZINE HYDROCHLORIDE
     Indication: HYPERTENSIVE CRISIS

REACTIONS (3)
  - Cryptococcosis [None]
  - Respiratory failure [None]
  - Acute febrile neutrophilic dermatosis [None]

NARRATIVE: CASE EVENT DATE: 19440907
